FAERS Safety Report 9935194 (Version 1)
Quarter: 2014Q1

REPORT INFORMATION
  Report Type: Spontaneous
  Country: CH (occurrence: CH)
  Receive Date: 20140228
  Receipt Date: 20140228
  Transmission Date: 20141002
  Serious: Yes (Other)
  Sender: FDA-Public Use
  Company Number: CH-UCBSA-113204

PATIENT
  Sex: Female

DRUGS (1)
  1. CIMZIA [Suspect]

REACTIONS (3)
  - Urosepsis [Not Recovered/Not Resolved]
  - Bacterial pyelonephritis [Not Recovered/Not Resolved]
  - Renal failure chronic [Not Recovered/Not Resolved]
